FAERS Safety Report 17968918 (Version 1)
Quarter: 2020Q3

REPORT INFORMATION
  Report Type: Spontaneous
  Country: US (occurrence: US)
  Receive Date: 20200701
  Receipt Date: 20200701
  Transmission Date: 20201103
  Serious: No
  Sender: FDA-Public Use
  Company Number: US-PFM-2019-05823

PATIENT
  Age: 11 Month
  Sex: Male

DRUGS (3)
  1. HEMANGEOL [Suspect]
     Active Substance: PROPRANOLOL HYDROCHLORIDE
     Dosage: UNK UNK, BID (2/DAY)
     Route: 048
     Dates: start: 20190513
  2. HEMANGEOL [Suspect]
     Active Substance: PROPRANOLOL HYDROCHLORIDE
     Dosage: 2 ML, BID (2/DAY)
     Route: 048
  3. HEMANGEOL [Suspect]
     Active Substance: PROPRANOLOL HYDROCHLORIDE
     Indication: INFANTILE HAEMANGIOMA
     Dosage: 3 ML, BID (2/DAY)
     Route: 048
     Dates: start: 201811, end: 20190429

REACTIONS (3)
  - Off label use [Unknown]
  - Sleep disorder [Unknown]
  - Product administered to patient of inappropriate age [Unknown]
